FAERS Safety Report 12467689 (Version 1)
Quarter: 2016Q2

REPORT INFORMATION
  Report Type: Spontaneous
  Country: US (occurrence: None)
  Receive Date: 20160614
  Receipt Date: 20160614
  Transmission Date: 20160815
  Serious: No
  Sender: FDA-Public Use
  Company Number: None

PATIENT

DRUGS (2)
  1. ALFENTANIL. [Suspect]
     Active Substance: ALFENTANIL
  2. REMIFENTANIL HCL [Suspect]
     Active Substance: REMIFENTANIL HYDROCHLORIDE

REACTIONS (2)
  - Product name confusion [None]
  - Intercepted product selection error [None]
